FAERS Safety Report 10584112 (Version 1)
Quarter: 2014Q4

REPORT INFORMATION
  Report Type: Spontaneous
  Country: US (occurrence: None)
  Receive Date: 20141113
  Receipt Date: 20141113
  Transmission Date: 20150529
  Serious: Yes (Other)
  Sender: FDA-Public Use
  Company Number: None

PATIENT
  Age: 69 Year
  Sex: Female
  Weight: 70.76 kg

DRUGS (7)
  1. ADDERALL [Concomitant]
     Active Substance: AMPHETAMINE ASPARTATE\AMPHETAMINE SULFATE\DEXTROAMPHETAMINE SACCHARATE\DEXTROAMPHETAMINE SULFATE
  2. CALCIUM WITH D [Concomitant]
     Active Substance: CALCIUM\VITAMIN D
  3. OXYCODONE AND ACETAMINOPHEN [Suspect]
     Active Substance: ACETAMINOPHEN\OXYCODONE\OXYCODONE HYDROCHLORIDE
     Indication: NECK PAIN
     Dosage: AS NEEDED, USUALLY TAKE ONE TAB MOST DAYS BUT ONCE IN AWHILE I TOOK AN EXTRA 1/2 TAB.
     Dates: start: 20120912, end: 20141104
  4. TAPAZOLE [Concomitant]
     Active Substance: METHIMAZOLE
  5. LISINOPRIL. [Concomitant]
     Active Substance: LISINOPRIL
  6. TEMAZEPAM. [Concomitant]
     Active Substance: TEMAZEPAM
  7. OXYCODONE AND ACETAMINOPHEN [Suspect]
     Active Substance: ACETAMINOPHEN\OXYCODONE\OXYCODONE HYDROCHLORIDE
     Indication: SURGERY
     Dosage: AS NEEDED, USUALLY TAKE ONE TAB MOST DAYS BUT ONCE IN AWHILE I TOOK AN EXTRA 1/2 TAB.
     Dates: start: 20120912, end: 20141104

REACTIONS (8)
  - Peripheral swelling [None]
  - Joint swelling [None]
  - Crying [None]
  - Depression [None]
  - Finger deformity [None]
  - Hypoaesthesia [None]
  - Trigger finger [None]
  - Constipation [None]

NARRATIVE: CASE EVENT DATE: 20140601
